FAERS Safety Report 8174182-2 (Version None)
Quarter: 2012Q1

REPORT INFORMATION
  Report Type: 
  Country: None (occurrence: None)
  Receive Date: 20120227
  Receipt Date: 20120207
  Transmission Date: 20120608
  Serious: Yes (Other)
  Sender: FDA-Public Use
  Company Number: FK201200376

PATIENT
  Age: 48 Year
  Sex: Female

DRUGS (2)
  1. PACLITAXEL [Suspect]
     Indication: BREAST CANCER
     Dosage: 90 MG/M2, ON DAYS 1, 8 AND 15
  2. BEVACIZUMAB (BEVACIZUMAB) [Suspect]
     Indication: BREAST CANCER
     Dosage: 10 MG/KG, ON DAYS 1 AND 15

REACTIONS (6)
  - NASAL SEPTUM PERFORATION [None]
  - NASAL DISCOMFORT [None]
  - NASAL CONGESTION [None]
  - RHINORRHOEA [None]
  - EPISTAXIS [None]
  - NASAL NECROSIS [None]
